FAERS Safety Report 9420654 (Version 2)
Quarter: 2013Q3

REPORT INFORMATION
  Report Type: Report from Study
  Country: BR (occurrence: BR)
  Receive Date: 20130725
  Receipt Date: 20130808
  Transmission Date: 20140515
  Serious: Yes (Other)
  Sender: FDA-Public Use
  Company Number: PHHY2013BR067809

PATIENT
  Age: 65 Year
  Sex: Male
  Weight: 94 kg

DRUGS (2)
  1. AFINITOR [Suspect]
     Indication: RENAL CANCER
     Dosage: 10 MG, DAILY
     Dates: start: 20130517, end: 20130722
  2. SELOZOK [Concomitant]

REACTIONS (9)
  - Lymphadenitis bacterial [Not Recovered/Not Resolved]
  - Herpes virus infection [Recovering/Resolving]
  - Eye irritation [Not Recovered/Not Resolved]
  - Swelling face [Not Recovered/Not Resolved]
  - Hypersensitivity [Not Recovered/Not Resolved]
  - Aphthous stomatitis [Not Recovered/Not Resolved]
  - Malaise [Not Recovered/Not Resolved]
  - Oral candidiasis [Unknown]
  - Immunosuppression [Unknown]
